FAERS Safety Report 17795072 (Version 1)
Quarter: 2020Q2

REPORT INFORMATION
  Report Type: Spontaneous
  Country: FR (occurrence: FR)
  Receive Date: 20200515
  Receipt Date: 20200515
  Transmission Date: 20200714
  Serious: Yes (Other)
  Sender: FDA-Public Use
  Company Number: FR-PFIZER INC-2020193000

PATIENT
  Age: 82 Year
  Sex: Male
  Weight: 88 kg

DRUGS (3)
  1. VYNDAQEL [Suspect]
     Active Substance: TAFAMIDIS MEGLUMINE
     Dosage: 20 MG, DAILY
     Dates: end: 20200513
  2. CORDARONE [Concomitant]
     Active Substance: AMIODARONE HYDROCHLORIDE
  3. BURINEX [Concomitant]
     Active Substance: BUMETANIDE
     Dosage: 5 UNK, 2X/DAY

REACTIONS (2)
  - Disease progression [Unknown]
  - Cardiac failure chronic [Unknown]
